FAERS Safety Report 26119193 (Version 2)
Quarter: 2025Q4

REPORT INFORMATION
  Report Type: Spontaneous
  Country: US (occurrence: US)
  Receive Date: 20251204
  Receipt Date: 20251215
  Transmission Date: 20260118
  Serious: Yes (Other)
  Sender: TEVA
  Company Number: US-TEVA-VS-3397904

PATIENT
  Age: 57 Year
  Sex: Female

DRUGS (2)
  1. BUPROPION [Suspect]
     Active Substance: BUPROPION
     Indication: Depression
     Route: 065
  2. TAMOXIFEN [Concomitant]
     Active Substance: TAMOXIFEN
     Indication: Product used for unknown indication
     Dosage: RECEIVED 5 YEAR COURSE AND WOULD FINISH IN 3 WEEKS OF INITIATION OF BUPROPION
     Route: 065

REACTIONS (4)
  - Idiosyncratic drug reaction [Recovered/Resolved]
  - Lymphoedema [Recovered/Resolved]
  - Periorbital oedema [Recovered/Resolved]
  - Swelling face [Recovered/Resolved]
